FAERS Safety Report 6315722-5 (Version None)
Quarter: 2009Q3

REPORT INFORMATION
  Report Type: 
  Country: None (occurrence: None)
  Receive Date: 20090818
  Receipt Date: 20090806
  Transmission Date: 20100115
  Serious: Yes (Death)
  Sender: FDA-Public Use
  Company Number: OPER20090121

PATIENT
  Age: 24 Year
  Sex: Male
  Weight: 77.5651 kg

DRUGS (6)
  1. OPANA ER [Suspect]
     Indication: BACK PAIN
     Dosage: 20 MG, Q12H, 10 MG, BID
     Dates: start: 20081229
  2. LORTAB [Suspect]
     Dosage: 20 MG, Q12H
  3. PROMETHAZINE [Suspect]
  4. VALIUM [Concomitant]
  5. RESTORIL [Concomitant]
  6. VERAPAMIL [Concomitant]

REACTIONS (14)
  - AORTIC ARTERIOSCLEROSIS [None]
  - ARTERIOSCLEROSIS CORONARY ARTERY [None]
  - CARDIOMEGALY [None]
  - CELL DEATH [None]
  - DRUG SCREEN POSITIVE [None]
  - DRUG TOXICITY [None]
  - GENERALISED OEDEMA [None]
  - HEPATIC CONGESTION [None]
  - MULTI-ORGAN DISORDER [None]
  - PANCREATIC HAEMORRHAGE [None]
  - PULMONARY CONGESTION [None]
  - PULMONARY OEDEMA [None]
  - SPLEEN CONGESTION [None]
  - VISCERAL CONGESTION [None]
